FAERS Safety Report 9893627 (Version 1)
Quarter: 2014Q1

REPORT INFORMATION
  Report Type: Spontaneous
  Country: CA (occurrence: CA)
  Receive Date: 20140213
  Receipt Date: 20140213
  Transmission Date: 20141002
  Serious: Yes (Other)
  Sender: FDA-Public Use
  Company Number: CA-ABBVIE-14P-028-1199946-00

PATIENT
  Sex: Female

DRUGS (1)
  1. LUPRON DEPOT [Suspect]
     Indication: NEOPLASM
     Dates: end: 201312

REACTIONS (2)
  - Tibia fracture [Recovered/Resolved]
  - Pain [Not Recovered/Not Resolved]
